FAERS Safety Report 13993604 (Version 1)
Quarter: 2017Q3

REPORT INFORMATION
  Report Type: Report from Study
  Country: BR (occurrence: BR)
  Receive Date: 20170920
  Receipt Date: 20170920
  Transmission Date: 20171128
  Serious: Yes (Other)
  Sender: FDA-Public Use
  Company Number: BR-UCBSA-2017037935

PATIENT
  Sex: Female

DRUGS (3)
  1. TOPIRAMATE. [Concomitant]
     Active Substance: TOPIRAMATE
     Indication: PRODUCT USED FOR UNKNOWN INDICATION
  2. LEVETIRACETAM. [Suspect]
     Active Substance: LEVETIRACETAM
     Indication: EPILEPSY
     Dosage: 250 MG, 2X/DAY (BID)
     Route: 048
     Dates: start: 201612
  3. LAMITOR [Concomitant]
     Active Substance: LAMOTRIGINE
     Indication: PRODUCT USED FOR UNKNOWN INDICATION

REACTIONS (3)
  - Focal dyscognitive seizures [Unknown]
  - Epilepsy [Not Recovered/Not Resolved]
  - Feeding disorder [Not Recovered/Not Resolved]
